FAERS Safety Report 7096185-1 (Version None)
Quarter: 2010Q4

REPORT INFORMATION
  Report Type: 
  Country: None (occurrence: None)
  Receive Date: 20101103
  Receipt Date: 20100928
  Transmission Date: 20110411
  Serious: Yes (Hospitalization)
  Sender: FDA-Public Use
  Company Number: MX-SOLVAY-00310005920

PATIENT
  Age: 26 Year
  Sex: Male

DRUGS (6)
  1. LUVOX [Suspect]
     Indication: ANXIETY
     Dosage: 100 MILLIGRAM(S) ORAL
     Route: 048
     Dates: start: 20100827, end: 20100827
  2. LUVOX [Suspect]
     Indication: DEPRESSION
     Dosage: 100 MILLIGRAM(S) ORAL
     Route: 048
     Dates: start: 20100827, end: 20100827
  3. FENOFIBRATE/SIMVASTATIN (FENOFIBRATE/SIMVASTATIN) [Concomitant]
  4. ALLOPURINOL [Concomitant]
  5. CIPROFLOXACIN [Concomitant]
  6. AMLODIPINE [Concomitant]

REACTIONS (11)
  - ANXIETY [None]
  - BLOOD CHOLESTEROL INCREASED [None]
  - FEAR OF DEATH [None]
  - HEADACHE [None]
  - LEUKOPENIA [None]
  - LOW DENSITY LIPOPROTEIN INCREASED [None]
  - PARANOIA [None]
  - PROTEIN URINE PRESENT [None]
  - TREMOR [None]
  - URINE KETONE BODY PRESENT [None]
  - WHITE BLOOD CELLS URINE POSITIVE [None]
